FAERS Safety Report 25728495 (Version 1)
Quarter: 2025Q3

REPORT INFORMATION
  Report Type: Spontaneous
  Country: US (occurrence: US)
  Receive Date: 20250826
  Receipt Date: 20250826
  Transmission Date: 20251020
  Serious: Yes (Hospitalization)
  Sender: ALEXION PHARMACEUTICALS
  Company Number: US-AstraZeneca-CH-00936790AM

PATIENT
  Sex: Female

DRUGS (8)
  1. TRUQAP [Suspect]
     Active Substance: CAPIVASERTIB
     Indication: Breast cancer metastatic
     Dosage: 400 MILLIGRAM, BID
  2. TRUQAP [Suspect]
     Active Substance: CAPIVASERTIB
     Indication: Tumour marker increased
  3. RIBOCICLIB [Concomitant]
     Active Substance: RIBOCICLIB
     Route: 065
  4. GOSERELIN [Concomitant]
     Active Substance: GOSERELIN
     Route: 065
  5. LETROZOLE [Concomitant]
     Active Substance: LETROZOLE
     Route: 065
  6. FASLODEX [Concomitant]
     Active Substance: FULVESTRANT
     Indication: Tumour marker increased
     Route: 065
  7. FASLODEX [Concomitant]
     Active Substance: FULVESTRANT
     Indication: Malignant neoplasm progression
  8. CAPIVASERTIB [Concomitant]
     Active Substance: CAPIVASERTIB
     Dosage: 320 MILLIGRAM, BID
     Route: 065

REACTIONS (3)
  - Fatigue [Unknown]
  - Anaemia [Unknown]
  - Thrombocytopenia [Unknown]
